FAERS Safety Report 13839348 (Version 1)
Quarter: 2017Q3

REPORT INFORMATION
  Report Type: Spontaneous
  Country: US (occurrence: US)
  Receive Date: 20170805
  Receipt Date: 20170805
  Transmission Date: 20171127
  Serious: Yes (Hospitalization)
  Sender: FDA-Public Use
  Company Number: None

PATIENT
  Age: 84 Year
  Sex: Male

DRUGS (19)
  1. IRON [Concomitant]
     Active Substance: IRON
  2. SITAGLIPTIN [Concomitant]
     Active Substance: SITAGLIPTIN
  3. AMOXICILLIN/CLAVULANATE [Concomitant]
     Active Substance: AMOXICILLIN\CLAVULANATE POTASSIUM
  4. CHLORTHALIDONE. [Concomitant]
     Active Substance: CHLORTHALIDONE
  5. EZETIMIBE. [Concomitant]
     Active Substance: EZETIMIBE
  6. LABETALOL [Concomitant]
     Active Substance: LABETALOL\LABETALOL HYDROCHLORIDE
  7. ROSUVASTATIN. [Concomitant]
     Active Substance: ROSUVASTATIN
  8. TIMOLOL OPTHALMIC [Concomitant]
  9. INSULIN GLARGINE [Suspect]
     Active Substance: INSULIN GLARGINE
     Indication: HYPERGLYCAEMIA
     Dosage: 25 UNITS AT BEDTIME SC
     Route: 058
     Dates: start: 20170127
  10. BUDESONIDE. [Concomitant]
     Active Substance: BUDESONIDE
  11. OMEPRAZOLE. [Concomitant]
     Active Substance: OMEPRAZOLE
  12. ASPIRIN. [Concomitant]
     Active Substance: ASPIRIN
  13. ENALAPRIL [Concomitant]
     Active Substance: ENALAPRIL
  14. MYCOPHENOLATE [Concomitant]
     Active Substance: MYCOPHENOLIC ACID
  15. CYCLOSPORINE. [Concomitant]
     Active Substance: CYCLOSPORINE
  16. MULTIVITAMIN [Concomitant]
     Active Substance: VITAMINS
  17. PREDNISOLONE. [Concomitant]
     Active Substance: PREDNISOLONE
  18. CALCIUM CARBONATE/VITAMIN D [Concomitant]
     Active Substance: CALCIUM CARBONATE\VITAMIN D
  19. DORZOLAMIDE OPTHALMIC [Concomitant]

REACTIONS (4)
  - Diarrhoea [None]
  - Hypophagia [None]
  - Hypoglycaemia [None]
  - Acute kidney injury [None]

NARRATIVE: CASE EVENT DATE: 20170518
